FAERS Safety Report 21381302 (Version 2)
Quarter: 2022Q3

REPORT INFORMATION
  Report Type: Spontaneous
  Country: US (occurrence: US)
  Receive Date: 20220927
  Receipt Date: 20220929
  Transmission Date: 20221027
  Serious: No
  Sender: FDA-Public Use
  Company Number: US-PFIZER INC-202201185259

PATIENT
  Age: 79 Year
  Sex: Male
  Weight: 78.47 kg

DRUGS (5)
  1. PAXLOVID [Suspect]
     Active Substance: NIRMATRELVIR\RITONAVIR
     Indication: COVID-19 treatment
     Dosage: 6 PILLS A DAY (TOOK 3 PILLS IN THE MORNING AND 3 AT NIGHT)
     Dates: end: 20220921
  2. OMEPRAZOLE [Concomitant]
     Active Substance: OMEPRAZOLE
     Indication: Gastrooesophageal reflux disease
     Dosage: 20 MG
  3. ATORVASTATIN CALCIUM [Concomitant]
     Active Substance: ATORVASTATIN CALCIUM
     Indication: Blood cholesterol abnormal
     Dosage: 40 MG
  4. HYDROCHLOROTHIAZIDE\LISINOPRIL [Concomitant]
     Active Substance: HYDROCHLOROTHIAZIDE\LISINOPRIL
     Indication: Blood pressure abnormal
     Dosage: UNK
  5. AVODART [Concomitant]
     Active Substance: DUTASTERIDE
     Indication: Prostatomegaly
     Dosage: UNK

REACTIONS (3)
  - Anosmia [Unknown]
  - Dizziness [Recovered/Resolved]
  - Asthenia [Unknown]

NARRATIVE: CASE EVENT DATE: 20220924
